FAERS Safety Report 23693984 (Version 1)
Quarter: 2024Q2

REPORT INFORMATION
  Report Type: Spontaneous
  Country: CH (occurrence: CH)
  Receive Date: 20240401
  Receipt Date: 20240401
  Transmission Date: 20240716
  Serious: Yes (Hospitalization, Other)
  Sender: FDA-Public Use
  Company Number: None

PATIENT
  Age: 69 Year
  Sex: Male

DRUGS (16)
  1. ATORVASTATIN [Interacting]
     Active Substance: ATORVASTATIN
     Indication: Coronary artery disease
     Dosage: 40 MILLIGRAM, QD (ONCE DAILY)
     Route: 048
     Dates: end: 20230825
  2. RIMSTAR [Interacting]
     Active Substance: ETHAMBUTOL\ISONIAZID\PYRAZINAMIDE\RIFAMYCIN
     Indication: Pulmonary tuberculosis
     Dosage: 5 DOSAGE FORM, QD (5 TABLETS ONCE DAILY)
     Route: 048
     Dates: start: 20230818, end: 20230825
  3. RIFAMPIN [Interacting]
     Active Substance: RIFAMPIN
     Indication: Pulmonary tuberculosis
     Dosage: 600 MILLIGRAM, QD (ONCE DAILY)
     Route: 042
     Dates: start: 20230912, end: 20230915
  4. ASPIRIN [Concomitant]
     Active Substance: ASPIRIN
     Indication: Coronary artery disease
     Dosage: 100 MILLIGRAM, QD (ONCE DAILY)
     Route: 048
     Dates: end: 20230917
  5. ASPIRIN [Concomitant]
     Active Substance: ASPIRIN
     Dosage: 100 MILLIGRAM, QD (ONCE DAILY)
     Route: 048
     Dates: start: 20230925
  6. CANDESARTAN [Concomitant]
     Active Substance: CANDESARTAN
     Dosage: 16 MILLIGRAM, QD (ONCE DAILY)
     Route: 048
     Dates: end: 20230908
  7. DAPAGLIFLOZIN [Concomitant]
     Active Substance: DAPAGLIFLOZIN
     Indication: Type 2 diabetes mellitus
     Dosage: 10 MILLIGRAM, QD
     Route: 048
     Dates: end: 20230913
  8. VITAMIN B6 [Concomitant]
     Active Substance: PYRIDOXINE HYDROCHLORIDE
     Dosage: UNK
     Route: 048
     Dates: start: 20230818
  9. HARNSTOFF [Concomitant]
     Indication: Inappropriate antidiuretic hormone secretion
     Dosage: 20 MILLIGRAM (8 HOUR)
     Route: 048
     Dates: end: 20230913
  10. ISONIAZID [Concomitant]
     Active Substance: ISONIAZID
     Indication: Pulmonary tuberculosis
     Dosage: 300 MILLIGRAM, QD (ONCE DAILY)
     Route: 048
     Dates: start: 20230916
  11. ETHAMBUTOL [Concomitant]
     Active Substance: ETHAMBUTOL HYDROCHLORIDE
     Indication: Pulmonary tuberculosis
     Dosage: 1600 MILLIGRAM, QD (ONCE DAILY)
     Route: 048
     Dates: start: 20230916
  12. AMIKACIN [Concomitant]
     Active Substance: AMIKACIN
     Indication: Pulmonary tuberculosis
     Dosage: 1 GRAM, QD (ONCE DAILY)
     Route: 042
     Dates: start: 20230916, end: 20230923
  13. AMIKACIN [Concomitant]
     Active Substance: AMIKACIN
     Dosage: 750 MILLIGRAM, QD (ONCE DAILY)
     Route: 042
     Dates: start: 20230923
  14. MOXIFLOXACIN [Concomitant]
     Active Substance: MOXIFLOXACIN
     Indication: Pulmonary tuberculosis
     Dosage: 400 MILLIGRAM, QD (ONCE DAILY)
     Route: 042
     Dates: start: 20230916, end: 20230922
  15. MOXIFLOXACIN [Concomitant]
     Active Substance: MOXIFLOXACIN
     Dosage: 400 MILLIGRAM, QD (ONCE DAILY)
     Route: 048
     Dates: start: 20230922
  16. PLAVIX [Concomitant]
     Active Substance: CLOPIDOGREL BISULFATE
     Indication: Coronary artery disease
     Dosage: UNK
     Route: 048
     Dates: start: 20230917, end: 20230925

REACTIONS (8)
  - Liver disorder [Recovered/Resolved]
  - Pneumonitis [Recovered/Resolved]
  - Drug interaction [Recovered/Resolved]
  - Septic shock [Unknown]
  - Pneumonia aspiration [Unknown]
  - Acute respiratory distress syndrome [Unknown]
  - Shock [Unknown]
  - Drug hypersensitivity [Recovered/Resolved]

NARRATIVE: CASE EVENT DATE: 20230818
